FAERS Safety Report 8520602-0 (Version None)
Quarter: 2012Q3

REPORT INFORMATION
  Report Type: 
  Country: None (occurrence: None)
  Receive Date: 20120719
  Receipt Date: 20120711
  Transmission Date: 20120928
  Serious: Yes (Other)
  Sender: FDA-Public Use
  Company Number: BR-PFIZER INC-2012167574

PATIENT
  Age: 79 Year
  Sex: Female
  Weight: 70 kg

DRUGS (7)
  1. XALATAN [Suspect]
     Indication: GLAUCOMA
     Dosage: UNK
     Dates: start: 20100101, end: 20120709
  2. LOSARTAN [Concomitant]
     Indication: CARDIAC DISORDER
     Dosage: A HALF OF TABLET, NOT INFORMED FREQUENCY
  3. TIMOLOL [Concomitant]
  4. ATENOLOL [Concomitant]
     Indication: CARDIAC DISORDER
     Dosage: A HALF OF TABLET IN THE MORNING AND AT NIGHT
  5. AZOPT [Concomitant]
     Indication: GLAUCOMA
  6. HYDROCHLOROTHIAZIDE [Concomitant]
     Indication: CARDIAC DISORDER
     Dosage: UNK
  7. SIMVASTATIN [Concomitant]
     Indication: BLOOD CHOLESTEROL

REACTIONS (6)
  - THROAT TIGHTNESS [None]
  - DYSPNOEA [None]
  - SWOLLEN TONGUE [None]
  - APPARENT DEATH [None]
  - PRURITUS [None]
  - COUGH [None]
